FAERS Safety Report 23489717 (Version 1)
Quarter: 2024Q1

REPORT INFORMATION
  Report Type: Spontaneous
  Country: US (occurrence: None)
  Receive Date: 20240206
  Receipt Date: 20240206
  Transmission Date: 20240410
  Serious: No
  Sender: FDA-Public Use
  Company Number: US-ROCHE-3271303

PATIENT
  Age: 68 Year
  Sex: Female

DRUGS (30)
  1. XOLAIR [Suspect]
     Active Substance: OMALIZUMAB
     Indication: Product used for unknown indication
     Route: 065
  2. BUDESONIDE [Concomitant]
     Active Substance: BUDESONIDE
  3. ATROPINE\DIPHENOXYLATE [Concomitant]
     Active Substance: ATROPINE\DIPHENOXYLATE
  4. DOCUSATE SODIUM [Concomitant]
     Active Substance: DOCUSATE SODIUM
  5. LATANOPROST [Concomitant]
     Active Substance: LATANOPROST
  6. NYSTATIN [Concomitant]
     Active Substance: NYSTATIN
  7. METHYLPHENIDATE [Concomitant]
     Active Substance: METHYLPHENIDATE
  8. MORPHINE [Concomitant]
     Active Substance: MORPHINE
  9. SPIRONOLACTONE [Concomitant]
     Active Substance: SPIRONOLACTONE
  10. FLUTICASONE [Concomitant]
     Active Substance: FLUTICASONE
  11. CYCLOBENZAPRINE [Concomitant]
     Active Substance: CYCLOBENZAPRINE
  12. PSEUDOEPHEDRINE [Concomitant]
     Active Substance: PSEUDOEPHEDRINE
  13. CETIRIZINE [Concomitant]
     Active Substance: CETIRIZINE HYDROCHLORIDE
  14. ALBUTEROL [Concomitant]
     Active Substance: ALBUTEROL
  15. ACETAMINOPHEN [Concomitant]
     Active Substance: ACETAMINOPHEN
  16. PREDNISONE [Concomitant]
     Active Substance: PREDNISONE
  17. SULFASALAZINE [Concomitant]
     Active Substance: SULFASALAZINE
  18. CLOBETASOL [Concomitant]
     Active Substance: CLOBETASOL
  19. PANTOPRAZOLE [Concomitant]
     Active Substance: PANTOPRAZOLE
  20. IBANDRONATE SODIUM [Concomitant]
     Active Substance: IBANDRONATE SODIUM
  21. DILTIAZEM [Concomitant]
     Active Substance: DILTIAZEM
  22. MONTELUKAST [Concomitant]
     Active Substance: MONTELUKAST SODIUM
  23. FERROUS SULFATE [Concomitant]
     Active Substance: FERROUS SULFATE
  24. DULOXETINE [Concomitant]
     Active Substance: DULOXETINE
  25. CARVEDILOL [Concomitant]
     Active Substance: CARVEDILOL
  26. TRIAMCINOLONE [Concomitant]
     Active Substance: TRIAMCINOLONE
  27. NYSTATIN [Concomitant]
     Active Substance: NYSTATIN
  28. LEFLUNOMIDE [Concomitant]
     Active Substance: LEFLUNOMIDE
  29. BISACODYL [Concomitant]
     Active Substance: BISACODYL
  30. LEVOTHYROXINE [Concomitant]
     Active Substance: LEVOTHYROXINE\LEVOTHYROXINE SODIUM

REACTIONS (6)
  - Tremor [Unknown]
  - Confusional state [Unknown]
  - Pulmonary congestion [Unknown]
  - Blood sodium decreased [Unknown]
  - White blood cell count decreased [Unknown]
  - Hyponatraemia [Unknown]
